FAERS Safety Report 5298419-2 (Version None)
Quarter: 2007Q2

REPORT INFORMATION
  Report Type: 
  Country: None (occurrence: None)
  Receive Date: 20070409
  Receipt Date: 20070329
  Transmission Date: 20071010
  Serious: Yes (Other)
  Sender: FDA-Public Use
  Company Number: 2007SP005295

PATIENT
  Sex: Male

DRUGS (1)
  1. CLARINEX [Suspect]
     Indication: DRUG USE FOR UNKNOWN INDICATION
     Dosage: ; UNK; PO
     Route: 048

REACTIONS (5)
  - DIZZINESS [None]
  - HYPERSOMNIA [None]
  - INJURY [None]
  - LOSS OF CONSCIOUSNESS [None]
  - ROAD TRAFFIC ACCIDENT [None]
